FAERS Safety Report 8942117 (Version 1)
Quarter: 2012Q4

REPORT INFORMATION
  Report Type: 
  Country: US (occurrence: US)
  Receive Date: 20121203
  Receipt Date: 20121203
  Transmission Date: 20130627
  Serious: No
  Sender: FDA-Public Use
  Company Number: US-B.I. PHARMACEUTICALS,INC./RIDGEFIELD-2012-BI-01788BP

PATIENT
  Age: 79 Year
  Sex: Female

DRUGS (9)
  1. PRADAXA [Suspect]
     Indication: ATRIAL FIBRILLATION
     Dosage: 300 mg
     Route: 048
     Dates: start: 20120301
  2. SYNTHROID [Concomitant]
     Indication: HYPOTHYROIDISM
     Dosage: 0.25 mg
     Route: 048
     Dates: start: 2000
  3. HYZAAR [Concomitant]
     Indication: HYPERTENSION
     Route: 048
     Dates: start: 2000
  4. LIPITOR [Concomitant]
     Indication: BLOOD CHOLESTEROL INCREASED
     Dosage: 20 mg
     Route: 048
     Dates: start: 2000
  5. BABY ASPIRIN [Concomitant]
     Indication: CARDIAC DISORDER
     Dosage: 162 mg
     Route: 048
     Dates: start: 2000
  6. METOPROLOL [Concomitant]
     Indication: CARDIAC DISORDER
     Dosage: 100 mg
     Route: 048
     Dates: start: 201203
  7. STROVITE PLUS [Concomitant]
     Indication: SUPPLEMENTATION THERAPY
     Route: 048
     Dates: start: 2005
  8. CO-ENZYME Q10 [Concomitant]
     Indication: SUPPLEMENTATION THERAPY
     Dosage: 50 mg
     Route: 048
     Dates: start: 2005
  9. B COMPLEX + C [Concomitant]
     Indication: SUPPLEMENTATION THERAPY
     Route: 048

REACTIONS (4)
  - Arthralgia [Unknown]
  - Dyspnoea [Not Recovered/Not Resolved]
  - Fatigue [Unknown]
  - Atrial fibrillation [Unknown]
